FAERS Safety Report 15316366 (Version 2)
Quarter: 2018Q4

REPORT INFORMATION
  Report Type: Report from Study
  Country: US (occurrence: US)
  Receive Date: 20180824
  Receipt Date: 20181009
  Transmission Date: 20190204
  Serious: Yes (Other)
  Sender: FDA-Public Use
  Company Number: US-SA-2018SA233993

PATIENT
  Age: 36 Year
  Sex: Female

DRUGS (1)
  1. ALGLUCOSIDASE ALFA [Suspect]
     Active Substance: ALGLUCOSIDASE ALFA
     Indication: GLYCOGEN STORAGE DISEASE TYPE II
     Dosage: 1600.00 Q2
     Route: 041
     Dates: start: 20180330

REACTIONS (6)
  - Dyspnoea [Unknown]
  - Malignant melanoma [Not Recovered/Not Resolved]
  - Brain natriuretic peptide increased [Unknown]
  - Pulmonary hypertension [Unknown]
  - Hypoaesthesia [Unknown]
  - Syncope [Unknown]

NARRATIVE: CASE EVENT DATE: 20181001
